FAERS Safety Report 22090201 (Version 1)
Quarter: 2023Q1

REPORT INFORMATION
  Report Type: Spontaneous
  Country: BR (occurrence: BR)
  Receive Date: 20230313
  Receipt Date: 20230313
  Transmission Date: 20230417
  Serious: Yes (Other)
  Sender: FDA-Public Use
  Company Number: BR-ORGANON-O2303BRA000487

PATIENT
  Sex: Female
  Weight: 105 kg

DRUGS (10)
  1. NUVARING [Suspect]
     Active Substance: ETHINYL ESTRADIOL\ETONOGESTREL
     Indication: Haemorrhage
     Dosage: 1 VAGINAL RING FOR 3 WEEKS
     Route: 067
     Dates: start: 2019
  2. DESVENLAFAXINE [Concomitant]
     Active Substance: DESVENLAFAXINE
     Indication: Anxiety
     Dosage: 1 DOSAGE FORM, QD (1 TABLET DAILY IN THE BREAKFAST); FOR 4 YEARS
     Route: 048
  3. VITAMIN D NOS [Concomitant]
     Active Substance: VITAMIN D NOS
     Dosage: ONCE A WEEK IN THE MORNING
     Dates: start: 2017
  4. TORVAL [VALPROATE SODIUM;VALPROIC ACID] [Concomitant]
     Indication: Binge eating
     Dosage: 1 TABLET AT NIGHT
     Route: 048
     Dates: start: 202301
  5. TORVAL [VALPROATE SODIUM;VALPROIC ACID] [Concomitant]
     Indication: Binge eating
     Dosage: UNK
     Route: 048
     Dates: start: 202211, end: 202301
  6. RYBELSUS [Concomitant]
     Active Substance: SEMAGLUTIDE
     Indication: Type 2 diabetes mellitus
     Dosage: 1 TABLET IN THE MORNING IN EMPTY STOMACH
     Route: 048
  7. MINERALS\VITAMINS [Concomitant]
     Active Substance: MINERALS\VITAMINS
     Dosage: CONTINUOUS USE IN THE BREAKFAST, FOR 5 YEARS
  8. IRON POLYMALTOSE [Concomitant]
     Active Substance: IRON POLYMALTOSE
     Indication: Mineral supplementation
     Dosage: 1 TABLET IN THE MORNING FOR CONTINUOUS USE TO REPLACE IRON
     Route: 048
     Dates: start: 201004
  9. IRON POLYMALTOSE [Concomitant]
     Active Substance: IRON POLYMALTOSE
     Dosage: 1 TABLET IN THE MORNING FOR CONTINUOUS USE
     Route: 048
  10. HUMIRA [Concomitant]
     Active Substance: ADALIMUMAB
     Dosage: 1 SYRINGE EVERY 14 DAYS
     Route: 058
     Dates: start: 2017

REACTIONS (4)
  - Arrhythmia [Unknown]
  - Weight increased [Unknown]
  - Product use in unapproved indication [Unknown]
  - Incorrect product administration duration [Unknown]

NARRATIVE: CASE EVENT DATE: 20190101
